FAERS Safety Report 9632223 (Version 1)
Quarter: 2013Q4

REPORT INFORMATION
  Report Type: Spontaneous
  Country: AU (occurrence: None)
  Receive Date: 20131016
  Receipt Date: 20131016
  Transmission Date: 20140711
  Serious: Yes (Other)
  Sender: FDA-Public Use
  Company Number: SYM-2013-11538

PATIENT
  Sex: Male

DRUGS (5)
  1. METRONIDAZOLE [Suspect]
  2. PENICILLIN NOS [Suspect]
     Indication: PRODUCT USED FOR UNKNOWN INDICATION
  3. SODIUM VALPROATE [Suspect]
  4. AMOXIL [Suspect]
  5. GENTAMICIN SULFATE [Suspect]

REACTIONS (1)
  - Pancytopenia [None]
